FAERS Safety Report 7800072-8 (Version None)
Quarter: 2011Q4

REPORT INFORMATION
  Report Type: 
  Country: None (occurrence: None)
  Receive Date: 20111006
  Receipt Date: 20110927
  Transmission Date: 20120403
  Serious: Yes (Hospitalization)
  Sender: FDA-Public Use
  Company Number: FR-ASTRAZENECA-2011SE58492

PATIENT
  Age: 62 Year
  Sex: Male
  Weight: 75 kg

DRUGS (5)
  1. NAPROSYN [Suspect]
     Indication: BACK PAIN
     Route: 048
     Dates: start: 20110816, end: 20110819
  2. OMEPRAZOLE [Suspect]
     Route: 048
     Dates: start: 20110816, end: 20110819
  3. ACETAMINOPHEN W/ PROPOXYPHENE HCL [Suspect]
     Route: 048
     Dates: start: 20110816, end: 20110819
  4. MIOREL [Suspect]
     Route: 048
     Dates: start: 20110816, end: 20110819
  5. ASPEGIC 325 [Concomitant]
     Dosage: PLATELET ANTIAGREGANT DOSE
     Dates: start: 20110101

REACTIONS (3)
  - CLUTTERING [None]
  - HYPERTENSION [None]
  - DISORIENTATION [None]
